FAERS Safety Report 14375673 (Version 1)
Quarter: 2018Q1

REPORT INFORMATION
  Report Type: Spontaneous
  Country: US (occurrence: US)
  Receive Date: 20180110
  Receipt Date: 20180110
  Transmission Date: 20180509
  Serious: Yes (Hospitalization)
  Sender: FDA-Public Use
  Company Number: None

PATIENT
  Age: 65 Year
  Sex: Female
  Weight: 53.98 kg

DRUGS (12)
  1. SYNTHROID [Concomitant]
     Active Substance: LEVOTHYROXINE SODIUM
  2. ATIVAN [Concomitant]
     Active Substance: LORAZEPAM
  3. FLEXERIL [Concomitant]
     Active Substance: CYCLOBENZAPRINE HYDROCHLORIDE
  4. NEURONTIN [Concomitant]
     Active Substance: GABAPENTIN
  5. MEVACOR [Concomitant]
     Active Substance: LOVASTATIN
  6. ADVAIR HFA [Concomitant]
     Active Substance: FLUTICASONE PROPIONATE\SALMETEROL XINAFOATE
  7. PAXIL [Concomitant]
     Active Substance: PAROXETINE HYDROCHLORIDE
  8. OXYGEN. [Concomitant]
     Active Substance: OXYGEN
  9. INCRUSE ELLIPTA [Concomitant]
     Active Substance: UMECLIDINIUM BROMIDE
  10. MOBIC [Concomitant]
     Active Substance: MELOXICAM
  11. NORVASC [Concomitant]
     Active Substance: AMLODIPINE BESYLATE
  12. RECLAST [Suspect]
     Active Substance: ZOLEDRONIC ACID
     Dates: start: 20140911, end: 20160911

REACTIONS (11)
  - Emotional disorder [None]
  - Economic problem [None]
  - Tooth abscess [None]
  - Impaired healing [None]
  - Speech disorder [None]
  - Bone graft [None]
  - Graft infection [None]
  - Mental disorder [None]
  - Jaw disorder [None]
  - Scar [None]
  - Post procedural infection [None]

NARRATIVE: CASE EVENT DATE: 20160204
